FAERS Safety Report 4459896-X (Version None)
Quarter: 2004Q3

REPORT INFORMATION
  Report Type: 
  Country: None (occurrence: None)
  Receive Date: 20040928
  Receipt Date: 20030902
  Transmission Date: 20050211
  Serious: No
  Sender: FDA-Public Use
  Company Number: US-GLAXOSMITHKLINE-A0424297A

PATIENT
  Age: 75 Year
  Sex: Female

DRUGS (5)
  1. SEREVENT [Suspect]
     Dosage: 1PUFF TWICE PER DAY
     Route: 055
     Dates: start: 20030823, end: 20030827
  2. DYAZIDE [Concomitant]
  3. SYNTHROID [Concomitant]
  4. PRILOSEC [Concomitant]
  5. SYNTHROID [Concomitant]

REACTIONS (2)
  - BRONCHOSPASM [None]
  - PRODUCTIVE COUGH [None]
